FAERS Safety Report 18017433 (Version 1)
Quarter: 2020Q3

REPORT INFORMATION
  Report Type: Spontaneous
  Country: GB (occurrence: GB)
  Receive Date: 20200713
  Receipt Date: 20200713
  Transmission Date: 20201103
  Serious: Yes (Other)
  Sender: FDA-Public Use
  Company Number: GB-009507513-2007GBR003626

PATIENT
  Sex: Male

DRUGS (3)
  1. ABACAVIR. [Suspect]
     Active Substance: ABACAVIR
     Dosage: STRENGTH 600
  2. ISENTRESS [Suspect]
     Active Substance: RALTEGRAVIR POTASSIUM
     Dosage: STRENGTH 600
     Route: 048
  3. LAMIVUDINE. [Suspect]
     Active Substance: LAMIVUDINE
     Dosage: STRENGTH 300

REACTIONS (1)
  - COVID-19 [Unknown]

NARRATIVE: CASE EVENT DATE: 202004
